FAERS Safety Report 4520898-6 (Version None)
Quarter: 2004Q4

REPORT INFORMATION
  Report Type: 
  Country: None (occurrence: None)
  Receive Date: 20041203
  Receipt Date: 20041123
  Transmission Date: 20050328
  Serious: Yes (Other)
  Sender: FDA-Public Use
  Company Number: 2004098331

PATIENT
  Age: 45 Year
  Sex: Male

DRUGS (1)
  1. ZITHROMAX [Suspect]
     Indication: ILL-DEFINED DISORDER
     Dosage: ORAL
     Route: 048

REACTIONS (3)
  - ASTHMA [None]
  - HYPERSENSITIVITY [None]
  - OROPHARYNGEAL SWELLING [None]
